FAERS Safety Report 7284170-6 (Version None)
Quarter: 2011Q1

REPORT INFORMATION
  Report Type: 
  Country: None (occurrence: None)
  Receive Date: 20110209
  Receipt Date: 20110128
  Transmission Date: 20110831
  Serious: Yes (Hospitalization)
  Sender: FDA-Public Use
  Company Number: CA-GENENTECH-313185

PATIENT
  Sex: Female
  Weight: 63.5 kg

DRUGS (13)
  1. ZOPICLONE [Concomitant]
     Indication: PRODUCT USED FOR UNKNOWN INDICATION
     Dosage: UNK
  2. FORTEO [Concomitant]
     Indication: PRODUCT USED FOR UNKNOWN INDICATION
     Dosage: UNK
  3. SOLU-MEDROL [Concomitant]
     Indication: PREMEDICATION
     Dosage: 100 MG, SINGLE
     Route: 042
     Dates: start: 20110118, end: 20110118
  4. CALCIUM [Concomitant]
     Indication: PRODUCT USED FOR UNKNOWN INDICATION
     Dosage: UNK
  5. ATACAND [Concomitant]
     Indication: BLOOD PRESSURE MANAGEMENT
     Dosage: UNK
  6. OXYCONTIN [Concomitant]
     Indication: PRODUCT USED FOR UNKNOWN INDICATION
     Dosage: UNK
  7. BENADRYL [Concomitant]
     Indication: PREMEDICATION
     Dosage: 50 MG, SINGLE
     Route: 048
     Dates: start: 20110118, end: 20110118
  8. VITAMINE D [Concomitant]
     Indication: PRODUCT USED FOR UNKNOWN INDICATION
     Dosage: UNK
  9. VITAMIN B COMPLEX CAP [Concomitant]
     Indication: PRODUCT USED FOR UNKNOWN INDICATION
     Dosage: UNK
  10. GLUCOSAMINE SULPHATE [Concomitant]
     Indication: PRODUCT USED FOR UNKNOWN INDICATION
     Dosage: UNK
  11. RITUXIMAB [Suspect]
     Indication: RHEUMATOID ARTHRITIS
     Dosage: 1000 MG, DAYS 1+15
     Route: 042
     Dates: start: 20110118
  12. TYLENOL-500 [Concomitant]
     Indication: PREMEDICATION
     Dosage: 650 MG, SINGLE
     Route: 048
     Dates: start: 20110118, end: 20110118
  13. SALAZOPYRIN [Concomitant]
     Indication: ANTIINFLAMMATORY THERAPY
     Dosage: UNK

REACTIONS (7)
  - ARTHRALGIA [None]
  - JOINT SWELLING [None]
  - INFUSION RELATED REACTION [None]
  - COUGH [None]
  - FATIGUE [None]
  - DECREASED APPETITE [None]
  - DYSPNOEA [None]
